FAERS Safety Report 16799789 (Version 1)
Quarter: 2019Q3

REPORT INFORMATION
  Report Type: Spontaneous
  Country: PL (occurrence: PL)
  Receive Date: 20190912
  Receipt Date: 20190912
  Transmission Date: 20191005
  Serious: Yes (Other)
  Sender: FDA-Public Use
  Company Number: PL-PFIZER INC-2019388409

PATIENT
  Sex: Female

DRUGS (2)
  1. MIDOSTAURIN [Suspect]
     Active Substance: MIDOSTAURIN
     Indication: SYSTEMIC MASTOCYTOSIS
     Dosage: 100 MG, BID
     Route: 048
     Dates: start: 20190124
  2. PAMIDRONATE DISODIUM. [Suspect]
     Active Substance: PAMIDRONATE DISODIUM
     Dosage: 90 MG, MONTHLY (1X1 EVERY 4 WEEKS)
     Route: 065

REACTIONS (15)
  - Neutropenia [Unknown]
  - Hepatosplenomegaly [Unknown]
  - Nausea [Unknown]
  - Skin disorder [Unknown]
  - Spinal myelogram abnormal [Unknown]
  - Type 2 diabetes mellitus [Unknown]
  - Bone scan abnormal [Unknown]
  - Scan abdomen abnormal [Unknown]
  - Biopsy bone marrow abnormal [Unknown]
  - Weight increased [Unknown]
  - Tryptase increased [Unknown]
  - Abdominal pain [Unknown]
  - Diarrhoea [Unknown]
  - Therapy non-responder [Unknown]
  - Ultrasound abdomen abnormal [Unknown]

NARRATIVE: CASE EVENT DATE: 201804
